FAERS Safety Report 5826997-0 (Version None)
Quarter: 2008Q3

REPORT INFORMATION
  Report Type: 
  Country: None (occurrence: None)
  Receive Date: 20080730
  Receipt Date: 20080721
  Transmission Date: 20090109
  Serious: Yes (Other)
  Sender: FDA-Public Use
  Company Number: US-BAYER-200828618NA

PATIENT
  Age: 40 Year
  Sex: Female

DRUGS (10)
  1. CIPRO [Suspect]
     Indication: KIDNEY INFECTION
     Dosage: TOTAL DAILY DOSE: 1000 MG
     Dates: start: 20070701, end: 20070706
  2. CIPRO [Suspect]
     Dosage: TOTAL DAILY DOSE: 1500 MG
     Dates: start: 20001017, end: 20001116
  3. LEVAQUIN [Concomitant]
     Dates: start: 20010101
  4. LEVAQUIN [Concomitant]
     Dates: start: 20000901
  5. TEQUIN [Concomitant]
     Dates: start: 20001001
  6. PREDNISONE [Concomitant]
  7. ALBUTEROL [Concomitant]
  8. AUGMENTIN '125' [Concomitant]
     Dates: start: 20001108
  9. PREDNISONE [Concomitant]
     Dates: start: 20001101, end: 20001106
  10. PAIN MEDICINE NOS [Concomitant]

REACTIONS (6)
  - ARTHRALGIA [None]
  - CARPAL TUNNEL SYNDROME [None]
  - FIBROMYALGIA [None]
  - PAIN [None]
  - RHEUMATOID ARTHRITIS [None]
  - SYSTEMIC LUPUS ERYTHEMATOSUS [None]
